FAERS Safety Report 15850621 (Version 1)
Quarter: 2019Q1

REPORT INFORMATION
  Report Type: Spontaneous
  Country: None (occurrence: DE)
  Receive Date: 20190121
  Receipt Date: 20190121
  Transmission Date: 20190417
  Serious: Yes (Other)
  Sender: FDA-Public Use
  Company Number: DE-LABORATOIRE HRA PHARMA-2061527

PATIENT
  Age: 26 Year
  Sex: Female
  Weight: 70 kg

DRUGS (1)
  1. ELLA [Suspect]
     Active Substance: ULIPRISTAL ACETATE
     Indication: PRODUCT USED FOR UNKNOWN INDICATION
     Route: 048
     Dates: start: 20181102, end: 20181102

REACTIONS (1)
  - Ovarian cyst ruptured [Unknown]

NARRATIVE: CASE EVENT DATE: 20181216
